FAERS Safety Report 14634524 (Version 11)
Quarter: 2022Q1

REPORT INFORMATION
  Report Type: Report from Study
  Country: FR (occurrence: FR)
  Receive Date: 20180314
  Receipt Date: 20220310
  Transmission Date: 20220424
  Serious: Yes (Death, Life-Threatening, Hospitalization, Disabling, Other)
  Sender: FDA-Public Use
  Company Number: PHHY2018FR040305

PATIENT
  Age: 66 Year
  Sex: Male
  Weight: 85 kg

DRUGS (17)
  1. VOTRIENT [Suspect]
     Active Substance: PAZOPANIB HYDROCHLORIDE
     Indication: Renal cancer metastatic
     Dosage: 800 MG, QD
     Route: 048
     Dates: start: 20180222, end: 20180227
  2. INNOHEP [Suspect]
     Active Substance: TINZAPARIN SODIUM
     Indication: Vena cava thrombosis
     Dosage: CURATIVE DOSE
     Route: 065
     Dates: start: 20180222
  3. INNOHEP [Suspect]
     Active Substance: TINZAPARIN SODIUM
     Dosage: 0.8 ML, QD
     Route: 058
     Dates: start: 20180224, end: 20180227
  4. PREDNISONE [Concomitant]
     Active Substance: PREDNISONE
     Indication: Oedema
     Dosage: 80 MG, QD
     Route: 065
     Dates: start: 20180228
  5. NOVORAPID [Concomitant]
     Active Substance: INSULIN ASPART
     Indication: Product used for unknown indication
     Dosage: UNK
     Route: 058
  6. PREDNISONE [Concomitant]
     Active Substance: PREDNISONE
     Indication: Product used for unknown indication
     Dosage: 70 MG, QD
     Route: 048
  7. ACETAMINOPHEN [Concomitant]
     Active Substance: ACETAMINOPHEN
     Indication: Product used for unknown indication
     Dosage: UNK
     Route: 048
  8. DOMPERIDONE [Concomitant]
     Active Substance: DOMPERIDONE
     Indication: Product used for unknown indication
     Dosage: 30 MG, QD
     Route: 048
  9. NEBIVOLOL [Concomitant]
     Active Substance: NEBIVOLOL
     Indication: Product used for unknown indication
     Dosage: 2.5 MG, QD
     Route: 048
  10. PANTOPRAZOLE [Concomitant]
     Active Substance: PANTOPRAZOLE
     Indication: Product used for unknown indication
     Dosage: 40 MG, QD
     Route: 048
  11. LORAZEPAM [Concomitant]
     Active Substance: LORAZEPAM
     Indication: Product used for unknown indication
     Dosage: 2.5 MG, QD
     Route: 048
  12. VITAMIN D3 [Concomitant]
     Active Substance: CHOLECALCIFEROL
     Indication: Product used for unknown indication
     Dosage: UNK
     Route: 048
  13. LEVETIRACETAM [Concomitant]
     Active Substance: LEVETIRACETAM
     Indication: Product used for unknown indication
     Dosage: 500 MG, QD
     Route: 048
  14. TAMSULOISIN [Concomitant]
     Indication: Product used for unknown indication
     Dosage: 1 UG/L, QD
     Route: 048
  15. TRAVATAN [Concomitant]
     Active Substance: TRAVOPROST
     Indication: Product used for unknown indication
     Dosage: 1 GTT, QD, 40UG/ML
     Route: 047
  16. LERCANIDIPINE HYDROCHLORIDE [Concomitant]
     Active Substance: LERCANIDIPINE HYDROCHLORIDE
     Indication: Product used for unknown indication
     Dosage: 10 MG, QD
     Route: 048
  17. POTASSIUM CHLORIDE [Concomitant]
     Active Substance: POTASSIUM CHLORIDE
     Indication: Product used for unknown indication
     Dosage: 2 UG/L, QD
     Route: 065

REACTIONS (9)
  - General physical health deterioration [Fatal]
  - Confusional state [Fatal]
  - Cerebral haemorrhage [Recovered/Resolved with Sequelae]
  - Hemiplegia [Recovering/Resolving]
  - Cerebral haematoma [Recovered/Resolved]
  - Epistaxis [Recovered/Resolved]
  - Metastases to lung [Unknown]
  - Metastases to central nervous system [Unknown]
  - Malignant neoplasm progression [Unknown]

NARRATIVE: CASE EVENT DATE: 20180226
